FAERS Safety Report 6189718-0 (Version None)
Quarter: 2009Q2

REPORT INFORMATION
  Report Type: 
  Country: None (occurrence: None)
  Receive Date: 20090514
  Receipt Date: 20090506
  Transmission Date: 20091009
  Serious: Yes (Other)
  Sender: FDA-Public Use
  Company Number: SI-ROCHE-625185

PATIENT
  Sex: Female

DRUGS (9)
  1. BONIVA [Suspect]
     Indication: OSTEOPOROSIS
     Dosage: STOPPED THERAPY FOR THREE MONTHS.
     Route: 048
     Dates: start: 20060612
  2. BONIVA [Suspect]
     Route: 048
     Dates: end: 20090325
  3. INDAPAMID [Concomitant]
  4. CALCIUM CARBONATE [Concomitant]
  5. LERCANIDIPINE [Concomitant]
  6. ZOLPIDEM [Concomitant]
  7. CHOLECALCIFEROL [Concomitant]
  8. GALANTAMINE [Concomitant]
  9. FOSAMAX [Concomitant]
     Dates: start: 20041105, end: 20060612

REACTIONS (2)
  - OSTEONECROSIS [None]
  - OVERDOSE [None]
